FAERS Safety Report 4872537-2 (Version None)
Quarter: 2006Q1

REPORT INFORMATION
  Report Type: 
  Country: None (occurrence: None)
  Receive Date: 20060103
  Receipt Date: 20051221
  Transmission Date: 20060701
  Serious: Yes (Hospitalization, Disabling)
  Sender: FDA-Public Use
  Company Number: GB200512003675

PATIENT
  Age: 36 Year
  Sex: Male

DRUGS (2)
  1. CIALIS [Suspect]
     Indication: ERECTILE DYSFUNCTION
     Dosage: 10 MG; 20 MG, ORAL
     Route: 048
     Dates: start: 20050928, end: 20051005
  2. CIALIS [Suspect]
     Indication: ERECTILE DYSFUNCTION
     Dosage: 10 MG; 20 MG, ORAL
     Route: 048
     Dates: start: 20051005

REACTIONS (2)
  - MYALGIA [None]
  - POLYMYOSITIS [None]
